FAERS Safety Report 23535992 (Version 1)
Quarter: 2024Q1

REPORT INFORMATION
  Report Type: Spontaneous
  Country: DE (occurrence: DE)
  Receive Date: 20240219
  Receipt Date: 20240219
  Transmission Date: 20240410
  Serious: Yes (Other)
  Sender: FDA-Public Use
  Company Number: DE-TAKEDA-2021TUS002921

PATIENT
  Age: 36 Year
  Sex: Male

DRUGS (2)
  1. REMICADE [Suspect]
     Active Substance: INFLIXIMAB
     Indication: Product used for unknown indication
     Dosage: UNK
     Route: 040
  2. ENTYVIO [Suspect]
     Active Substance: VEDOLIZUMAB
     Indication: Crohn^s disease
     Dosage: UNK
     Route: 058

REACTIONS (25)
  - Aspiration [Unknown]
  - Sensation of foreign body [Unknown]
  - Ultrasound scan abnormal [Unknown]
  - Hepatic steatosis [Unknown]
  - Abdominal pain upper [Unknown]
  - Paraesthesia [Unknown]
  - Dyspepsia [Unknown]
  - Gastrointestinal viral infection [Unknown]
  - Fibromyalgia [Unknown]
  - Asthenia [Unknown]
  - Chills [Unknown]
  - Haemorrhoids thrombosed [Recovered/Resolved]
  - Muscle twitching [Unknown]
  - Abdominal pain [Unknown]
  - Hepatomegaly [Unknown]
  - Visual field defect [Unknown]
  - Diarrhoea [Unknown]
  - Muscular weakness [Unknown]
  - Arthropathy [Unknown]
  - Muscle spasms [Unknown]
  - Fatigue [Unknown]
  - Gastrooesophageal reflux disease [Unknown]
  - Steatorrhoea [Unknown]
  - Pain in extremity [Unknown]
  - Tremor [Unknown]
